FAERS Safety Report 4657592-7 (Version None)
Quarter: 2005Q2

REPORT INFORMATION
  Report Type: 
  Country: None (occurrence: None)
  Receive Date: 20050509
  Receipt Date: 20050509
  Transmission Date: 20051028
  Serious: Yes (Other)
  Sender: FDA-Public Use
  Company Number: None

PATIENT
  Sex: Male
  Weight: 129.2752 kg

DRUGS (4)
  1. PAXIL [Suspect]
     Indication: ANXIETY
     Dosage: 10MG-40MG  DAILY ORAL
     Route: 048
     Dates: start: 19970510, end: 20050423
  2. PAXIL [Suspect]
     Indication: PANIC ATTACK
     Dosage: 10MG-40MG  DAILY ORAL
     Route: 048
     Dates: start: 19970510, end: 20050423
  3. MULTI-VITAMIN B-STRESS COMPLEX [Concomitant]
  4. GINGER ROOT [Concomitant]

REACTIONS (1)
  - DRUG WITHDRAWAL SYNDROME [None]
